FAERS Safety Report 7021147-X (Version None)
Quarter: 2010Q3

REPORT INFORMATION
  Report Type: 
  Country: None (occurrence: None)
  Receive Date: 20100929
  Receipt Date: 20100922
  Transmission Date: 20110219
  Serious: Yes (Hospitalization)
  Sender: FDA-Public Use
  Company Number: DE-ABBOTT-10P-062-0672486-00

PATIENT
  Sex: Female
  Weight: 49 kg

DRUGS (6)
  1. HUMIRA [Suspect]
     Indication: CROHN'S DISEASE
     Route: 058
     Dates: start: 20091015
  2. HUMIRA [Suspect]
     Route: 058
  3. HUMIRA [Suspect]
     Route: 058
  4. AZATHIOPRINE [Concomitant]
     Indication: CROHN'S DISEASE
     Dosage: 2-2.5 MG/KG BODY WEIGHT
     Dates: start: 20050701
  5. PANTOPRAZOLE SODIUM [Concomitant]
     Indication: GASTRIC DISORDER
     Dates: start: 20100701
  6. PANTOPRAZOLE SODIUM [Concomitant]
     Indication: PROPHYLAXIS

REACTIONS (2)
  - ANAL STENOSIS [None]
  - RECTAL CANCER [None]
